FAERS Safety Report 8988698 (Version 1)
Quarter: 2012Q4

REPORT INFORMATION
  Report Type: Spontaneous
  Country: DK (occurrence: None)
  Receive Date: 20121219
  Receipt Date: 20121219
  Transmission Date: 20130627
  Serious: Yes (Life-Threatening)
  Sender: FDA-Public Use
  Company Number: 2012MA014130

PATIENT
  Age: 29 Year
  Sex: Female

DRUGS (3)
  1. FEVERALL [Suspect]
     Indication: POSTOPERATIVE ANALGESIA
     Route: 042
     Dates: start: 20121112, end: 20121112
  2. PARACETAMOL [Concomitant]
  3. ANALGESIC [Concomitant]

REACTIONS (1)
  - Anaphylactic reaction [None]
